FAERS Safety Report 6283364-6 (Version None)
Quarter: 2009Q3

REPORT INFORMATION
  Report Type: 
  Country: None (occurrence: None)
  Receive Date: 20090724
  Receipt Date: 20090720
  Transmission Date: 20100115
  Serious: Yes (Other)
  Sender: FDA-Public Use
  Company Number: CA-JNJCH-2009015781

PATIENT
  Sex: Male
  Weight: 111.1 kg

DRUGS (2)
  1. REACTINE [Suspect]
     Indication: HYPERSENSITIVITY
     Route: 048
     Dates: start: 20090606, end: 20090606
  2. EXTRA STRENGTH TYLENOL [Concomitant]
     Indication: MIGRAINE
     Dosage: TEXT:1 TABLET
     Route: 048

REACTIONS (10)
  - ALTERED STATE OF CONSCIOUSNESS [None]
  - BLOOD PRESSURE INCREASED [None]
  - CHEST PAIN [None]
  - DYSPNOEA [None]
  - EPISTAXIS [None]
  - FALL [None]
  - HEADACHE [None]
  - INSOMNIA [None]
  - PRODUCT QUALITY ISSUE [None]
  - SNEEZING [None]
